FAERS Safety Report 11019655 (Version 2)
Quarter: 2015Q2

REPORT INFORMATION
  Report Type: Spontaneous
  Country: US (occurrence: US)
  Receive Date: 20150412
  Receipt Date: 20150525
  Transmission Date: 20150821
  Serious: No
  Sender: FDA-Public Use
  Company Number: US-JNJFOC-20150111089

PATIENT
  Sex: Female

DRUGS (1)
  1. LEVAQUIN [Suspect]
     Active Substance: LEVOFLOXACIN
     Indication: PRODUCT USED FOR UNKNOWN INDICATION
     Route: 048
     Dates: start: 20150110

REACTIONS (4)
  - Diarrhoea [Unknown]
  - Tendon disorder [Unknown]
  - Flank pain [Unknown]
  - Malaise [Unknown]

NARRATIVE: CASE EVENT DATE: 20150111
